FAERS Safety Report 9000638 (Version 1)
Quarter: 2013Q1

REPORT INFORMATION
  Report Type: Report from Study
  Country: US (occurrence: US)
  Receive Date: 20130107
  Receipt Date: 20130107
  Transmission Date: 20140127
  Serious: Yes (Death, Hospitalization)
  Sender: FDA-Public Use
  Company Number: US-BAYER-2013-000048

PATIENT
  Age: 71 Year
  Sex: Female

DRUGS (1)
  1. NEXAVAR [Suspect]
     Indication: ACUTE MYELOID LEUKAEMIA
     Dosage: 400 MG, BID
     Route: 048
     Dates: start: 20121205, end: 20121226

REACTIONS (7)
  - Death [Fatal]
  - Nausea [Not Recovered/Not Resolved]
  - Dizziness [Not Recovered/Not Resolved]
  - Decreased appetite [Not Recovered/Not Resolved]
  - Enterocolitis infectious [Not Recovered/Not Resolved]
  - Hepatic infection [Not Recovered/Not Resolved]
  - Off label use [None]
